FAERS Safety Report 24967370 (Version 1)
Quarter: 2025Q1

REPORT INFORMATION
  Report Type: Spontaneous
  Country: DE (occurrence: DE)
  Receive Date: 20250214
  Receipt Date: 20250214
  Transmission Date: 20250409
  Serious: No
  Sender: ALKEM
  Company Number: DE-ALKEM LABORATORIES CORPORATION-DE-ALKEM-2024-01197

PATIENT
  Age: 39 Year
  Sex: Female

DRUGS (5)
  1. FINGOLIMOD [Suspect]
     Active Substance: FINGOLIMOD
     Indication: Relapsing-remitting multiple sclerosis
     Route: 048
     Dates: start: 20201022
  2. Comirnaty [Concomitant]
     Indication: COVID-19 immunisation
     Dosage: UNK, QD (EVERY 1 DAY)
     Route: 030
     Dates: start: 20210526, end: 20210526
  3. Comirnaty [Concomitant]
     Dosage: UNK, QD (EVERY 1 DAY)
     Route: 030
     Dates: start: 20210707, end: 20210707
  4. Comirnaty [Concomitant]
     Dosage: UNK, QD (EVERY 1 DAY)
     Route: 030
     Dates: start: 20211112, end: 20211112
  5. FLUOXETINE [Concomitant]
     Active Substance: FLUOXETINE HYDROCHLORIDE
     Indication: Depression
     Dosage: 20 MILLIGRAM, QD
     Route: 048
     Dates: start: 20211112

REACTIONS (1)
  - Lymphopenia [Not Recovered/Not Resolved]

NARRATIVE: CASE EVENT DATE: 20230616
